FAERS Safety Report 21424109 (Version 1)
Quarter: 2022Q4

REPORT INFORMATION
  Report Type: Spontaneous
  Country: US (occurrence: US)
  Receive Date: 20221007
  Receipt Date: 20221007
  Transmission Date: 20230112
  Serious: No
  Sender: FDA-Public Use
  Company Number: US-ELI_LILLY_AND_COMPANY-US202210002242

PATIENT
  Age: 80 Year
  Sex: Female

DRUGS (6)
  1. BASAGLAR [Suspect]
     Active Substance: INSULIN GLARGINE
     Indication: Type 2 diabetes mellitus
     Dosage: 40 U, UNKNOWN
     Route: 065
     Dates: start: 2018
  2. BASAGLAR [Suspect]
     Active Substance: INSULIN GLARGINE
     Indication: Type 2 diabetes mellitus
     Dosage: 40 U, UNKNOWN
     Route: 065
     Dates: start: 2018
  3. BASAGLAR [Suspect]
     Active Substance: INSULIN GLARGINE
     Dosage: 40 U, UNKNOWN
     Route: 065
     Dates: start: 2018
  4. BASAGLAR [Suspect]
     Active Substance: INSULIN GLARGINE
     Dosage: 40 U, UNKNOWN
     Route: 065
     Dates: start: 2018
  5. GLIPIZIDE [Concomitant]
     Active Substance: GLIPIZIDE
     Indication: Type 2 diabetes mellitus
  6. JANUVIA [Concomitant]
     Active Substance: SITAGLIPTIN PHOSPHATE
     Indication: Type 2 diabetes mellitus

REACTIONS (1)
  - Injury associated with device [Unknown]

NARRATIVE: CASE EVENT DATE: 20221004
